FAERS Safety Report 6132232-9 (Version None)
Quarter: 2009Q1

REPORT INFORMATION
  Report Type: 
  Country: None (occurrence: None)
  Receive Date: 20090325
  Receipt Date: 20090314
  Transmission Date: 20090719
  Serious: Yes (Hospitalization)
  Sender: FDA-Public Use
  Company Number: US-PFIZER INC-2009182748

PATIENT
  Sex: Male

DRUGS (16)
  1. MARAVIROC [Suspect]
     Indication: HIV INFECTION
     Dosage: 150 MG, 2X/DAY
     Route: 048
     Dates: start: 20060202, end: 20060729
  2. KALETRA [Concomitant]
     Dosage: UNK
     Route: 048
     Dates: start: 20060801
  3. TMC-125 [Concomitant]
     Dosage: UNK
     Route: 048
     Dates: start: 20060319
  4. RALTEGRAVIR [Concomitant]
     Dosage: UNK
     Route: 048
     Dates: start: 20070319
  5. SUDAFED 12 HOUR [Concomitant]
     Dosage: UNK
     Route: 048
     Dates: start: 20060217
  6. ALBUTEROL [Concomitant]
     Dosage: UNK
     Route: 048
     Dates: start: 20060804
  7. POLY-L-LACTIC ACID [Concomitant]
     Indication: FACIAL WASTING
     Dosage: UNK
     Route: 058
     Dates: start: 20071130
  8. NEURONTIN [Concomitant]
     Dosage: UNK
     Route: 048
     Dates: start: 20071001
  9. ACYCLOVIR [Concomitant]
     Dosage: UNK
     Route: 048
     Dates: start: 20020913
  10. AVODART [Concomitant]
     Dosage: UNK
     Route: 048
     Dates: start: 20050601
  11. TAMSULOSIN HYDROCHLORIDE [Concomitant]
     Dosage: UNK
     Route: 048
     Dates: start: 20050201
  12. PROMETHAZINE [Concomitant]
     Dosage: UNK
     Route: 048
     Dates: start: 20050516
  13. FAMOTIDINE [Concomitant]
     Dosage: UNK
     Route: 048
     Dates: start: 20031107
  14. SYNTHROID [Concomitant]
     Dosage: UNK
     Route: 048
     Dates: start: 20000830
  15. OXYCODONE [Concomitant]
     Dosage: UNK
     Route: 048
     Dates: start: 20041020
  16. DOCUSATE [Concomitant]
     Dosage: UNK
     Route: 048
     Dates: start: 20041101

REACTIONS (1)
  - DEHYDRATION [None]
